FAERS Safety Report 5173819-X (Version None)
Quarter: 2006Q4

REPORT INFORMATION
  Report Type: 
  Country: None (occurrence: None)
  Receive Date: 20061214
  Receipt Date: 20061115
  Transmission Date: 20070319
  Serious: Yes (Hospitalization)
  Sender: FDA-Public Use
  Company Number: JP-JPN-A200604916

PATIENT
  Age: 52 Year
  Sex: Female
  Weight: 65 kg

DRUGS (8)
  1. VALTREX [Suspect]
     Indication: HERPES ZOSTER
     Dosage: 500MG TWICE PER DAY
     Route: 048
     Dates: start: 20061113, end: 20061115
  2. ALFAROL [Concomitant]
     Dosage: 1.5MCG PER DAY
     Route: 048
  3. NORVASC [Concomitant]
     Indication: HYPERTENSION
     Dosage: 10MG PER DAY
     Route: 048
     Dates: start: 20061109
  4. RENAGEL [Concomitant]
     Dosage: 3000MG PER DAY
     Route: 048
  5. ACECOL [Concomitant]
     Dosage: 4MG PER DAY
     Route: 048
  6. LIPITOR [Concomitant]
     Dosage: 10MG PER DAY
     Route: 048
  7. MUCOSTA [Concomitant]
     Indication: GASTRITIS
     Dosage: 300MG PER DAY
     Route: 048
  8. POVIDONE IODINE [Concomitant]

REACTIONS (8)
  - DIZZINESS [None]
  - HEADACHE [None]
  - HYPOAESTHESIA [None]
  - MALAISE [None]
  - NAUSEA [None]
  - PSYCHIATRIC SYMPTOM [None]
  - TREMOR [None]
  - VOMITING [None]
